FAERS Safety Report 16064652 (Version 2)
Quarter: 2019Q2

REPORT INFORMATION
  Report Type: Report from Study
  Country: US (occurrence: US)
  Receive Date: 20190312
  Receipt Date: 20190423
  Transmission Date: 20190711
  Serious: Yes (Hospitalization)
  Sender: FDA-Public Use
  Company Number: US-BAUSCH-BL-2019-007418

PATIENT
  Age: 77 Year
  Sex: Female
  Weight: 44.04 kg

DRUGS (3)
  1. UCERIS [Suspect]
     Active Substance: BUDESONIDE
     Indication: COLITIS ULCERATIVE
     Route: 065
     Dates: end: 201812
  2. UCERIS [Suspect]
     Active Substance: BUDESONIDE
     Route: 065
     Dates: start: 201902, end: 20190302
  3. UCERIS [Suspect]
     Active Substance: BUDESONIDE
     Route: 065
     Dates: end: 201902

REACTIONS (3)
  - Gastric ulcer haemorrhage [Recovered/Resolved]
  - Therapy cessation [Unknown]
  - Product supply issue [Unknown]

NARRATIVE: CASE EVENT DATE: 201812
